FAERS Safety Report 23441026 (Version 1)
Quarter: 2024Q1

REPORT INFORMATION
  Report Type: Spontaneous
  Country: NL (occurrence: NL)
  Receive Date: 20240125
  Receipt Date: 20240125
  Transmission Date: 20240410
  Serious: Yes (Hospitalization)
  Sender: FDA-Public Use
  Company Number: NL-EMA-DD-20231003-5861859-132725

PATIENT
  Age: 67 Year
  Sex: Female

DRUGS (4)
  1. OXALIPLATIN [Suspect]
     Active Substance: OXALIPLATIN
     Indication: Colorectal cancer metastatic
     Dosage: 130 MILLIGRAM/SQ. METER, 1DOSE/21DAYS
     Route: 040
     Dates: start: 20220204, end: 20220223
  2. BEVACIZUMAB [Suspect]
     Active Substance: BEVACIZUMAB
     Indication: Colorectal cancer metastatic
     Dosage: 7.5 MILLIGRAM/KILOGRAM, 1 DOSE/3 WEEKS
     Route: 040
     Dates: start: 20220204, end: 20220223
  3. CAPECITABINE [Suspect]
     Active Substance: CAPECITABINE
     Indication: Colorectal cancer metastatic
     Dosage: 1000 MILLIGRAM/SQ. METER
     Route: 048
     Dates: start: 20220204
  4. CAPECITABINE [Suspect]
     Active Substance: CAPECITABINE
     Indication: Colorectal cancer metastatic
     Dosage: 8000 MILLIGRAM/SQ. METER, DAILY
     Route: 048
     Dates: start: 20220204, end: 20220223

REACTIONS (2)
  - Arteriospasm coronary [Unknown]
  - Pleural effusion [Recovered/Resolved]

NARRATIVE: CASE EVENT DATE: 20220223
